FAERS Safety Report 14242863 (Version 1)
Quarter: 2017Q4

REPORT INFORMATION
  Report Type: Spontaneous
  Country: US (occurrence: None)
  Receive Date: 20171130
  Receipt Date: 20171130
  Transmission Date: 20180321
  Serious: Yes (Hospitalization)
  Sender: FDA-Public Use
  Company Number: None

PATIENT
  Age: 54 Year
  Sex: Male

DRUGS (10)
  1. PRILOSEC [Concomitant]
     Active Substance: OMEPRAZOLE MAGNESIUM
  2. RESTORIL [Concomitant]
     Active Substance: TEMAZEPAM
  3. FLOMAX [Concomitant]
     Active Substance: TAMSULOSIN HYDROCHLORIDE
  4. ZOFRAN [Concomitant]
     Active Substance: ONDANSETRON HYDROCHLORIDE
  5. ALBUTEROL. [Concomitant]
     Active Substance: ALBUTEROL
  6. PEPCID [Concomitant]
     Active Substance: FAMOTIDINE
  7. FOLIC ACID. [Concomitant]
     Active Substance: FOLIC ACID
  8. XALKORI [Suspect]
     Active Substance: CRIZOTINIB
     Indication: NEOPLASM MALIGNANT
     Route: 048
     Dates: start: 20170628
  9. CIALIS [Concomitant]
     Active Substance: TADALAFIL
  10. TYLENOL [Concomitant]
     Active Substance: ACETAMINOPHEN

REACTIONS (1)
  - Drug dose omission [None]

NARRATIVE: CASE EVENT DATE: 20171128
